FAERS Safety Report 5629777-4 (Version None)
Quarter: 2008Q1

REPORT INFORMATION
  Report Type: 
  Country: None (occurrence: None)
  Receive Date: 20080214
  Receipt Date: 20080131
  Transmission Date: 20080703
  Serious: Yes (Other)
  Sender: FDA-Public Use
  Company Number: JPI-P-002972

PATIENT
  Age: 69 Year
  Sex: Female

DRUGS (8)
  1. LUVOX CR [Suspect]
     Indication: BIPOLAR DISORDER
     Dosage: 100 MG, 1 IN 1 D, ORAL
     Route: 048
     Dates: start: 20070907, end: 20071016
  2. LITHIUM CARBONATE [Concomitant]
  3. BROMAZEPAM           (BROMAZEPAM) [Concomitant]
  4. TEPRENONE     (TEPRENONE) [Concomitant]
  5. GLICLAZIDE       (GLICLAZIDE) [Concomitant]
  6. ZOPICLONE             (ZOPICLONE) [Concomitant]
  7. ESTAZOLAM [Concomitant]
  8. ETIZOLAM        (ETIZOLAM) [Concomitant]

REACTIONS (1)
  - PANCYTOPENIA [None]
